FAERS Safety Report 15710777 (Version 1)
Quarter: 2018Q4

REPORT INFORMATION
  Report Type: Spontaneous
  Country: KR (occurrence: KR)
  Receive Date: 20181211
  Receipt Date: 20181211
  Transmission Date: 20190205
  Serious: Yes (Other)
  Sender: FDA-Public Use
  Company Number: KR-GUERBET-KR-20180032

PATIENT
  Age: 40 Year
  Sex: Male

DRUGS (2)
  1. LIPIODOL [Suspect]
     Active Substance: ETHIODIZED OIL
     Indication: THERAPEUTIC EMBOLISATION
     Route: 027
  2. LIPIODOL [Suspect]
     Active Substance: ETHIODIZED OIL
     Indication: LYMPHANGIOGRAM
     Route: 027

REACTIONS (2)
  - Product use in unapproved indication [Unknown]
  - Granulomatous lymphadenitis [Unknown]
